FAERS Safety Report 4992096-3 (Version None)
Quarter: 2006Q2

REPORT INFORMATION
  Report Type: 
  Country: None (occurrence: None)
  Receive Date: 20060504
  Receipt Date: 20050107
  Transmission Date: 20061013
  Serious: Yes (Hospitalization, Disabling)
  Sender: FDA-Public Use
  Company Number: US-MERCK-0501USA00681

PATIENT
  Age: 59 Year
  Sex: Male
  Weight: 70 kg

DRUGS (18)
  1. VIOXX [Suspect]
     Indication: ARTHRITIS
     Route: 048
     Dates: start: 20010405, end: 20030801
  2. AMBIEN [Concomitant]
     Route: 065
     Dates: start: 20040130
  3. CARAFATE [Concomitant]
     Route: 065
  4. ASPIRIN [Concomitant]
     Route: 065
  5. LORTAB [Concomitant]
     Route: 065
     Dates: start: 20030610
  6. ULTRASE MT20 [Concomitant]
     Route: 065
  7. PRAXIS (DOMPERIDONE (+) PANCREATIN (+) SIMETHICONE) [Concomitant]
     Route: 065
  8. LEXAPRO [Concomitant]
     Route: 065
  9. PREVACID [Concomitant]
     Route: 065
  10. ALLEGRA [Concomitant]
     Route: 065
     Dates: start: 20030610
  11. RHINOCORT [Concomitant]
     Route: 065
     Dates: start: 20030610
  12. RHINOCORT [Concomitant]
     Route: 065
     Dates: start: 20030610
  13. AUGMENTIN '125' [Concomitant]
     Route: 065
     Dates: start: 20030610
  14. HUMIBID L.A. [Concomitant]
     Route: 065
     Dates: start: 20030610
  15. ZADITOR [Concomitant]
     Route: 065
     Dates: start: 20030610
  16. VITA C [Concomitant]
     Route: 065
  17. NSI FISH OIL PLUS COQ10 [Concomitant]
     Route: 065
  18. IRON (UNSPECIFIED) [Concomitant]
     Route: 065

REACTIONS (14)
  - ARTERIAL STENOSIS [None]
  - ATRIAL FIBRILLATION [None]
  - BACK PAIN [None]
  - CERUMEN IMPACTION [None]
  - CHOLECYSTECTOMY [None]
  - DYSPEPSIA [None]
  - ERECTILE DYSFUNCTION [None]
  - FACIAL PAIN [None]
  - HAEMORRHOIDS [None]
  - INSOMNIA [None]
  - NEPHROLITHIASIS [None]
  - REFLUX GASTRITIS [None]
  - RHINITIS ALLERGIC [None]
  - SINUSITIS [None]
